FAERS Safety Report 8688734 (Version 3)
Quarter: 2012Q4

REPORT INFORMATION
  Report Type: 
  Country: US (occurrence: US)
  Receive Date: 20120727
  Receipt Date: 20121112
  Transmission Date: 20130627
  Serious: Yes (Other)
  Sender: FDA-Public Use
  Company Number: US-PFIZER INC-2012177856

PATIENT

DRUGS (2)
  1. GLUCOTROL [Suspect]
     Dosage: Unk
  2. PROTONIX [Suspect]
     Dosage: Unk

REACTIONS (1)
  - Cerebrovascular accident [Unknown]
